FAERS Safety Report 4631229-5 (Version None)
Quarter: 2005Q2

REPORT INFORMATION
  Report Type: 
  Country: None (occurrence: None)
  Receive Date: 20050407
  Receipt Date: 20050407
  Transmission Date: 20051028
  Serious: No
  Sender: FDA-Public Use
  Company Number: None

PATIENT
  Sex: Female
  Weight: 78.0187 kg

DRUGS (1)
  1. QUINAPRIL [Suspect]
     Indication: HYPERTENSION
     Dosage: DAILY

REACTIONS (2)
  - DIARRHOEA [None]
  - MALAISE [None]
